FAERS Safety Report 5808008-6 (Version None)
Quarter: 2008Q3

REPORT INFORMATION
  Report Type: 
  Country: None (occurrence: None)
  Receive Date: 20080711
  Receipt Date: 20080703
  Transmission Date: 20090109
  Serious: Yes (Hospitalization)
  Sender: FDA-Public Use
  Company Number: US-GILEAD-2008-0015194

PATIENT
  Sex: Female

DRUGS (9)
  1. LETAIRIS [Suspect]
     Indication: PULMONARY ARTERIAL HYPERTENSION
     Route: 048
  2. VIAGRA [Concomitant]
     Route: 048
  3. SPIRONOLACTONE [Concomitant]
     Route: 048
  4. COUMADIN [Concomitant]
     Route: 048
  5. LOVENOX [Concomitant]
     Route: 058
  6. DIGOXIN [Concomitant]
     Route: 048
  7. OXYGEN [Concomitant]
     Route: 055
  8. GEMFIBROZIL [Concomitant]
     Route: 048
  9. PRILOSEC [Concomitant]
     Route: 048

REACTIONS (1)
  - PNEUMONIA [None]
